FAERS Safety Report 10056310 (Version 1)
Quarter: 2014Q2

REPORT INFORMATION
  Report Type: Spontaneous
  Country: US (occurrence: None)
  Receive Date: 20140401
  Receipt Date: 20140401
  Transmission Date: 20141212
  Serious: Yes (Death)
  Sender: FDA-Public Use
  Company Number: FK201401066

PATIENT
  Age: 74 Year
  Sex: Male
  Weight: 74 kg

DRUGS (4)
  1. LEUCOVORIN CALCIUM [Suspect]
     Indication: ADENOCARCINOMA OF COLON
     Dosage: (NOT OTHERWISE SPECIFIED)
     Route: 042
     Dates: start: 20131016
  2. ELOXATIN (OXALIPLATIN) (OXALIPLATIN) [Suspect]
     Indication: ADENOCARCINOMA OF COLON
     Dosage: (NOT OTHERWISE SPECIFIED)
     Route: 042
     Dates: start: 20131016
  3. FLUOROURACIL (FLUOROURACIL) (FLUOROURACIL) [Suspect]
     Indication: ADENOCARCINOMA OF COLON
     Dosage: (NOT OTHERWISE SPECIFIED)
     Route: 042
     Dates: start: 20131016
  4. CELECOXIB [Suspect]
     Indication: ADENOCARCINOMA OF COLON
     Dates: start: 20131030

REACTIONS (4)
  - Cardiac arrest [None]
  - Dyspnoea [None]
  - Hyperhidrosis [None]
  - Unresponsive to stimuli [None]
